FAERS Safety Report 15203002 (Version 1)
Quarter: 2018Q3

REPORT INFORMATION
  Report Type: Spontaneous
  Country: FR (occurrence: FR)
  Receive Date: 20180726
  Receipt Date: 20180726
  Transmission Date: 20181010
  Serious: Yes (Other)
  Sender: FDA-Public Use
  Company Number: FR-PFIZER INC-2018292931

PATIENT
  Age: 43 Year
  Sex: Female
  Weight: 66 kg

DRUGS (7)
  1. CERUBIDINE [Suspect]
     Active Substance: DAUNORUBICIN HYDROCHLORIDE
     Indication: BONE MARROW CONDITIONING REGIMEN
     Dosage: 90 MG/M2, CYCLIC
     Route: 042
     Dates: start: 20180531, end: 20180602
  2. CORTISONE ACETATE. [Concomitant]
     Active Substance: CORTISONE ACETATE
  3. ESOMEPRAZOLE MAGNESIUM TRIHYDRATE [Concomitant]
     Active Substance: ESOMEPRAZOLE MAGNESIUM
  4. INEXIUM /01479303/ [Concomitant]
     Active Substance: ESOMEPRAZOLE
  5. ARACYTINE [Suspect]
     Active Substance: CYTARABINE
     Indication: BONE MARROW CONDITIONING REGIMEN
     Dosage: 200 MG/M2, CYCLIC
     Route: 042
     Dates: start: 20180531, end: 20180606
  6. METHOTREXATE. [Concomitant]
     Active Substance: METHOTREXATE
  7. CICLOSPORIN [Concomitant]
     Active Substance: CYCLOSPORINE

REACTIONS (1)
  - Toxic skin eruption [Recovering/Resolving]

NARRATIVE: CASE EVENT DATE: 20180602
